FAERS Safety Report 9694171 (Version 3)
Quarter: 2013Q4

REPORT INFORMATION
  Report Type: Spontaneous
  Country: JP (occurrence: JP)
  Receive Date: 20131118
  Receipt Date: 20131122
  Transmission Date: 20140711
  Serious: Yes (Other)
  Sender: FDA-Public Use
  Company Number: JP-PFIZER INC-2013328872

PATIENT
  Age: 77 Year
  Sex: Male

DRUGS (3)
  1. CELECOX [Suspect]
     Dosage: 200 MG, DAILY
     Route: 048
     Dates: start: 2013
  2. OPALMON [Concomitant]
     Dosage: UNK
     Dates: start: 2013
  3. GASMOTIN [Concomitant]
     Dosage: UNK
     Route: 048

REACTIONS (1)
  - Intraocular pressure increased [Unknown]
